FAERS Safety Report 19912268 (Version 1)
Quarter: 2021Q4

REPORT INFORMATION
  Report Type: Spontaneous
  Country: US (occurrence: US)
  Receive Date: 20211004
  Receipt Date: 20211004
  Transmission Date: 20220303
  Serious: No
  Sender: FDA-Public Use
  Company Number: US-PFIZER INC-202101253934

PATIENT
  Age: 65 Year
  Sex: Male
  Weight: 113.4 kg

DRUGS (1)
  1. GABAPENTIN [Suspect]
     Active Substance: GABAPENTIN
     Indication: Diabetic neuropathy
     Dosage: 100 MG, 3X/DAY

REACTIONS (3)
  - Tooth fracture [Unknown]
  - Off label use [Unknown]
  - Drug effective for unapproved indication [Unknown]
